FAERS Safety Report 16609289 (Version 1)
Quarter: 2019Q3

REPORT INFORMATION
  Report Type: Spontaneous
  Country: US (occurrence: US)
  Receive Date: 20190607
  Receipt Date: 20190607
  Transmission Date: 20191004
  Serious: Yes (Hospitalization)
  Sender: FDA-Public Use
  Company Number: None

PATIENT
  Sex: Male

DRUGS (1)
  1. MERCAPTOPURINE TAB 50MG [Suspect]
     Active Substance: MERCAPTOPURINE
     Indication: PRODUCT USED FOR UNKNOWN INDICATION
     Dosage: ?          OTHER DOSE:1/2 TAB;OTHER FREQUENCY:4 TIMES A WEEK;?
     Route: 048
     Dates: start: 20190325, end: 20190509

REACTIONS (1)
  - Hospitalisation [None]
